FAERS Safety Report 5525979-6 (Version None)
Quarter: 2007Q4

REPORT INFORMATION
  Report Type: 
  Country: None (occurrence: None)
  Receive Date: 20071126
  Receipt Date: 20071120
  Transmission Date: 20080405
  Serious: Yes (Hospitalization)
  Sender: FDA-Public Use
  Company Number: IT-ROXANE LABORATORIES, INC-2007-BP-24845RO

PATIENT
  Age: 48 Year
  Sex: Male

DRUGS (3)
  1. DEXAMETHASONE [Suspect]
  2. MIDAZOLAM HCL [Concomitant]
     Indication: AGITATION
     Route: 042
  3. ONCOLOGICAL TREATMENTS [Concomitant]
     Indication: MULTIPLE MYELOMA

REACTIONS (6)
  - AGITATION [None]
  - DYSPHORIA [None]
  - IRRITABILITY [None]
  - MOOD SWINGS [None]
  - PRESSURE OF SPEECH [None]
  - PSYCHOTIC DISORDER [None]
